FAERS Safety Report 7618559-X (Version None)
Quarter: 2011Q3

REPORT INFORMATION
  Report Type: 
  Country: None (occurrence: None)
  Receive Date: 20110718
  Receipt Date: 20110713
  Transmission Date: 20111222
  Serious: Yes (Other)
  Sender: FDA-Public Use
  Company Number: MX-PFIZER INC-2011159675

PATIENT
  Age: 70 Year
  Sex: Female
  Weight: 73 kg

DRUGS (5)
  1. LASILACTON [Concomitant]
     Indication: RENAL DISORDER
     Dosage: UNK
     Dates: start: 20080101
  2. VENALOT - SLOW RELEASE [Concomitant]
     Indication: VEIN DISORDER
     Dosage: UNK
     Route: 048
     Dates: start: 20080101
  3. LYRICA [Suspect]
     Indication: NEURALGIA
     Dosage: 150 MG
     Route: 048
     Dates: start: 20080101
  4. LEVOTHYROXINE [Concomitant]
     Dosage: UNK
     Dates: start: 20080101
  5. OMEPRAZOLE [Concomitant]
     Indication: GASTRITIS
     Dosage: UNK
     Dates: start: 20010101

REACTIONS (1)
  - HYPERTENSION [None]
